FAERS Safety Report 15378651 (Version 1)
Quarter: 2018Q4

REPORT INFORMATION
  Report Type: Spontaneous
  Country: US (occurrence: US)
  Receive Date: 20180913
  Receipt Date: 20180913
  Transmission Date: 20190204
  Serious: Yes (Hospitalization, Other)
  Sender: FDA-Public Use
  Company Number: US-SAKK-2018SA249483AA

PATIENT
  Age: 24 Year
  Sex: Female

DRUGS (4)
  1. PARACETAMOL [Suspect]
     Active Substance: ACETAMINOPHEN
     Indication: SUICIDE ATTEMPT
     Route: 048
  2. ACETYLSALICYLIC ACID [Suspect]
     Active Substance: ASPIRIN
     Indication: SUICIDE ATTEMPT
     Route: 048
  3. BENADRYL 24 D [Suspect]
     Active Substance: LORATADINE\PSEUDOEPHEDRINE SULFATE
     Indication: SUICIDE ATTEMPT
     Route: 048
  4. CAFFEINE/IBUPROFEN [Suspect]
     Active Substance: CAFFEINE\IBUPROFEN
     Indication: SUICIDE ATTEMPT
     Route: 048

REACTIONS (5)
  - Hepatic enzyme increased [Recovered/Resolved]
  - Drug abuse [Unknown]
  - Hydrops foetalis [Unknown]
  - Exposure during pregnancy [Unknown]
  - Drug level increased [Recovered/Resolved]
